FAERS Safety Report 9564632 (Version 1)
Quarter: 2013Q3

REPORT INFORMATION
  Report Type: Spontaneous
  Country: US (occurrence: US)
  Receive Date: 20130930
  Receipt Date: 20130930
  Transmission Date: 20140515
  Serious: No
  Sender: FDA-Public Use
  Company Number: US-PFIZER INC-2013274261

PATIENT
  Age: 70 Year
  Sex: Female

DRUGS (1)
  1. BOSULIF [Suspect]
     Dosage: 500 MG, 1X/DAY
     Route: 048
     Dates: start: 201309, end: 201309

REACTIONS (3)
  - Diarrhoea [Unknown]
  - Influenza like illness [Unknown]
  - Arthralgia [Unknown]
